FAERS Safety Report 5712026-6 (Version None)
Quarter: 2008Q2

REPORT INFORMATION
  Report Type: 
  Country: None (occurrence: None)
  Receive Date: 20080417
  Receipt Date: 20080403
  Transmission Date: 20081010
  Serious: Yes (Hospitalization)
  Sender: FDA-Public Use
  Company Number: 2008000791

PATIENT
  Sex: Male

DRUGS (1)
  1. TARCEVA [Suspect]
     Indication: NON-SMALL CELL LUNG CANCER
     Dosage: (150 MG,QD);  (100 MG,QD)

REACTIONS (8)
  - CAUSTIC INJURY [None]
  - DIARRHOEA [None]
  - FAECES DISCOLOURED [None]
  - GASTRITIS [None]
  - MUCOSAL INFLAMMATION [None]
  - NAUSEA [None]
  - OESOPHAGITIS CHEMICAL [None]
  - SKIN REACTION [None]
